FAERS Safety Report 17021634 (Version 1)
Quarter: 2019Q4

REPORT INFORMATION
  Report Type: Spontaneous
  Country: US (occurrence: US)
  Receive Date: 20191111
  Receipt Date: 20191111
  Transmission Date: 20200122
  Serious: No
  Sender: FDA-Public Use
  Company Number: None

PATIENT
  Age: 16 Year
  Sex: Female
  Weight: 42.75 kg

DRUGS (2)
  1. RANITIDINE 75 MG [Suspect]
     Active Substance: RANITIDINE HYDROCHLORIDE
     Indication: NAUSEA
     Dosage: ?          QUANTITY:5 ML;?
     Route: 048
     Dates: start: 20190605, end: 20190730
  2. MULTIVITAMIN [Concomitant]
     Active Substance: VITAMINS

REACTIONS (5)
  - Nausea [None]
  - Paradoxical drug reaction [None]
  - Jaundice [None]
  - Vomiting [None]
  - Gilbert^s syndrome [None]
